FAERS Safety Report 13478727 (Version 10)
Quarter: 2020Q4

REPORT INFORMATION
  Report Type: Spontaneous
  Country: US (occurrence: US)
  Receive Date: 20170425
  Receipt Date: 20201001
  Transmission Date: 20210113
  Serious: Yes (Hospitalization, Disabling, Other)
  Sender: FDA-Public Use
  Company Number: US-009507513-1704USA012611

PATIENT
  Sex: Female
  Weight: 61.22 kg

DRUGS (3)
  1. FOSAMAX [Suspect]
     Active Substance: ALENDRONATE SODIUM
     Indication: OSTEOPOROSIS
     Dosage: 70 MG ONCE A WEEK, IN THE MORNING OF MONDAYS
     Route: 048
     Dates: start: 2002, end: 2008
  2. ALENDRONATE SODIUM. [Suspect]
     Active Substance: ALENDRONATE SODIUM
     Dosage: UNK
     Dates: start: 2009, end: 2016
  3. DILANTIN [Suspect]
     Active Substance: PHENYTOIN
     Indication: SEIZURE
     Dosage: 1-3 TIMES A DAY
     Dates: start: 1977

REACTIONS (85)
  - Parkinson^s disease [Unknown]
  - Haematoma [Recovered/Resolved with Sequelae]
  - Fall [Unknown]
  - Mobility decreased [Unknown]
  - Hyperlipidaemia [Unknown]
  - Hypoacusis [Unknown]
  - Essential tremor [Unknown]
  - Dysphonia [Unknown]
  - Chest discomfort [Unknown]
  - Vision blurred [Unknown]
  - Fall [Unknown]
  - Balance disorder [Unknown]
  - Depression [Unknown]
  - Anxiety [Unknown]
  - Sciatica [Unknown]
  - Lower respiratory tract congestion [Not Recovered/Not Resolved]
  - Chills [Unknown]
  - Back pain [Unknown]
  - Pain in extremity [Unknown]
  - Throat irritation [Unknown]
  - Oedema peripheral [Unknown]
  - Bone pain [Not Recovered/Not Resolved]
  - Rheumatoid arthritis [Unknown]
  - Amnesia [Unknown]
  - Somatic dysfunction [Unknown]
  - Dyspnoea exertional [Unknown]
  - Thyroid mass [Unknown]
  - Rib fracture [Unknown]
  - Muscle strain [Unknown]
  - Nasal congestion [Unknown]
  - Fatigue [Unknown]
  - Oropharyngeal pain [Not Recovered/Not Resolved]
  - Chest pain [Unknown]
  - Stress fracture [Unknown]
  - Subdural haematoma [Unknown]
  - Fall [Unknown]
  - Neurological symptom [Unknown]
  - Lethargy [Unknown]
  - Complication associated with device [Unknown]
  - Toxicity to various agents [Unknown]
  - Inspiratory capacity decreased [Unknown]
  - Adverse event [Unknown]
  - Syncope [Unknown]
  - Mental impairment [Unknown]
  - Back injury [Unknown]
  - Gait disturbance [Unknown]
  - Drug level below therapeutic [Unknown]
  - Tremor [Unknown]
  - Cough [Unknown]
  - Confusional state [Unknown]
  - Myalgia [Unknown]
  - Headache [Unknown]
  - Pyrexia [Unknown]
  - Spinal compression fracture [Unknown]
  - Fracture delayed union [Unknown]
  - Limb operation [Unknown]
  - Fall [Unknown]
  - Rotator cuff syndrome [Unknown]
  - Joint effusion [Unknown]
  - Groin pain [Unknown]
  - Bursitis [Unknown]
  - Arthralgia [Unknown]
  - Musculoskeletal chest pain [Unknown]
  - Asthenia [Unknown]
  - Low turnover osteopathy [Not Recovered/Not Resolved]
  - Femur fracture [Unknown]
  - Epilepsy [Unknown]
  - Carpal tunnel syndrome [Unknown]
  - Mean cell volume increased [Unknown]
  - Hypercholesterolaemia [Unknown]
  - Joint laxity [Unknown]
  - Myositis [Unknown]
  - Restless legs syndrome [Unknown]
  - Constipation [Unknown]
  - Brain contusion [Unknown]
  - Visual impairment [Unknown]
  - Large intestine polyp [Unknown]
  - Overweight [Unknown]
  - Dry eye [Unknown]
  - Amnesia [Unknown]
  - Tendonitis [Unknown]
  - Ventricular dysfunction [Unknown]
  - Nasal discharge discolouration [Unknown]
  - Productive cough [Unknown]
  - Dizziness [Unknown]

NARRATIVE: CASE EVENT DATE: 20030131
